FAERS Safety Report 14943554 (Version 2)
Quarter: 2018Q2

REPORT INFORMATION
  Report Type: Report from Study
  Country: MX (occurrence: MX)
  Receive Date: 20180528
  Receipt Date: 20180608
  Transmission Date: 20180711
  Serious: Yes (Other)
  Sender: FDA-Public Use
  Company Number: PHHY2018MX008146

PATIENT
  Sex: Male
  Weight: 95 kg

DRUGS (7)
  1. VALVULAN [Concomitant]
     Indication: ARRHYTHMIA
     Dosage: 1 DF, QD
     Route: 048
     Dates: start: 201801
  2. COSENTYX [Suspect]
     Active Substance: SECUKINUMAB
     Dosage: 150 MG/ML (4 INJECTIONS), QW
     Route: 058
  3. CORDRAN [Concomitant]
     Active Substance: FLURANDRENOLIDE
     Indication: ARRHYTHMIA
     Dosage: 1 DF, QD
     Route: 048
     Dates: start: 201801
  4. COSENTYX [Suspect]
     Active Substance: SECUKINUMAB
     Indication: PSORIATIC ARTHROPATHY
     Dosage: 150 MG/ML, UNK
     Route: 058
  5. MEXIUM [Concomitant]
     Indication: ARRHYTHMIA
     Dosage: 1 DF, QD
     Route: 048
     Dates: start: 201801
  6. COSENTYX [Suspect]
     Active Substance: SECUKINUMAB
     Dosage: 150 MG/ML (1 INJECTION), QMO
     Route: 058
  7. XARELTO [Concomitant]
     Active Substance: RIVAROXABAN
     Indication: ARRHYTHMIA
     Dosage: 1 DF, QD
     Route: 048

REACTIONS (3)
  - Drug prescribing error [Unknown]
  - Visual impairment [Unknown]
  - Eye infection [Not Recovered/Not Resolved]
